FAERS Safety Report 8178791-6 (Version None)
Quarter: 2012Q1

REPORT INFORMATION
  Report Type: 
  Country: None (occurrence: None)
  Receive Date: 20120301
  Receipt Date: 20120229
  Transmission Date: 20120608
  Serious: Yes (Other)
  Sender: FDA-Public Use
  Company Number: US-VERTEX PHARMACEUTICALS INC.-AE-2012-002881

PATIENT
  Sex: Male

DRUGS (4)
  1. RIBAVIRIN [Concomitant]
     Indication: HEPATITIS C
     Route: 048
     Dates: start: 20111208, end: 20120110
  2. INCIVEK [Suspect]
     Indication: HEPATITIS C
     Route: 048
     Dates: start: 20111208, end: 20120110
  3. PEGASYS [Concomitant]
     Indication: HEPATITIS C
     Dates: start: 20111208, end: 20120110
  4. HUMIRA [Concomitant]
     Route: 058

REACTIONS (3)
  - JOINT SWELLING [None]
  - HEPATIC CIRRHOSIS [None]
  - ANAEMIA [None]
